FAERS Safety Report 25586691 (Version 1)
Quarter: 2025Q3

REPORT INFORMATION
  Report Type: Spontaneous
  Country: US (occurrence: None)
  Receive Date: 20250720
  Receipt Date: 20250720
  Transmission Date: 20251020
  Serious: Yes (Hospitalization)
  Sender: FDA-CTU
  Company Number: None

PATIENT
  Age: 63 Year
  Sex: Male
  Weight: 148.05 kg

DRUGS (18)
  1. .DELTA.8-TETRAHYDROCANNABINOL\HERBALS [Suspect]
     Active Substance: .DELTA.8-TETRAHYDROCANNABINOL\HERBALS
     Indication: Back pain
     Route: 048
     Dates: start: 20250717, end: 20250717
  2. ZOLOFT [Concomitant]
     Active Substance: SERTRALINE HYDROCHLORIDE
  3. ABILIFY [Concomitant]
     Active Substance: ARIPIPRAZOLE
  4. FINASTERIDE [Concomitant]
     Active Substance: FINASTERIDE
  5. Tamilosin [Concomitant]
  6. VITAMIN D [Concomitant]
     Active Substance: VITAMIN D NOS
  7. ASPIRIN [Concomitant]
     Active Substance: ASPIRIN
  8. PROTONIX [Concomitant]
     Active Substance: PANTOPRAZOLE SODIUM
  9. TYLENOL WITH CODEINE [Concomitant]
     Active Substance: ACETAMINOPHEN\CODEINE PHOSPHATE
  10. FLEXERIL [Concomitant]
     Active Substance: CYCLOBENZAPRINE HYDROCHLORIDE
  11. NORCO [Concomitant]
     Active Substance: ACETAMINOPHEN\HYDROCODONE BITARTRATE
  12. DEVICE [Concomitant]
     Active Substance: DEVICE
  13. E-Stim [Concomitant]
  14. GARLIC [Concomitant]
     Active Substance: GARLIC
  15. Apple cider vinegar capsules [Concomitant]
  16. HERBALS\TURMERIC [Concomitant]
     Active Substance: HERBALS\TURMERIC
  17. VITAMIN D [Concomitant]
     Active Substance: VITAMIN D NOS
  18. MAGNESIUM [Concomitant]
     Active Substance: MAGNESIUM

REACTIONS (16)
  - Dizziness [None]
  - Paranoia [None]
  - Feeling abnormal [None]
  - Dysarthria [None]
  - Chest discomfort [None]
  - Cold sweat [None]
  - Hyperhidrosis [None]
  - Amnesia [None]
  - Dyspnoea [None]
  - Nausea [None]
  - Heart rate increased [None]
  - Blood pressure decreased [None]
  - Mobility decreased [None]
  - Anxiety [None]
  - Expired product administered [None]
  - Fatigue [None]

NARRATIVE: CASE EVENT DATE: 20250717
